FAERS Safety Report 7905029-4 (Version None)
Quarter: 2011Q4

REPORT INFORMATION
  Report Type: 
  Country: None (occurrence: None)
  Receive Date: 20111109
  Receipt Date: 20111103
  Transmission Date: 20120403
  Serious: Yes (Hospitalization, Other)
  Sender: FDA-Public Use
  Company Number: PHHY2011NL95841

PATIENT
  Sex: Male

DRUGS (10)
  1. ZOMETA [Suspect]
     Dosage: 4 MG/5 ML, 1 PER 28 DAYS
     Dates: start: 20111028
  2. EMEND [Concomitant]
     Dosage: AROUND CHEMOTHERAPY 125
  3. PREDNISONE [Concomitant]
     Dosage: 2.5 MG,  AROUND HEMOTHERAPY 1
  4. SIMVASTATIN [Concomitant]
     Dosage: 40 MG, AROUND CHEMTHERAPY 1
  5. SEREVENT [Concomitant]
     Dosage: 50 MG, UNK
  6. LOSARTAN POTASSIUM [Concomitant]
     Dosage: 100/25 MG AROUND HEMOTHERAPY 1
  7. ZOMETA [Suspect]
     Indication: PROSTATE CANCER METASTATIC
     Dosage: 4 MG/5 ML, 1 PER 28 DAYS
     Dates: start: 20110927
  8. DEXAMETHASONE [Concomitant]
     Dosage: AROUND CHEMOTHERAPY 125
  9. PULMICORT [Concomitant]
     Dosage: 400 MG, UNK
  10. ZOFRAN [Concomitant]
     Dosage: AROUND CHEMOTHERAPY 8

REACTIONS (7)
  - MALAISE [None]
  - PAIN [None]
  - INFLUENZA LIKE ILLNESS [None]
  - INSOMNIA [None]
  - MYALGIA [None]
  - RHABDOMYOLYSIS [None]
  - PYREXIA [None]
